FAERS Safety Report 4689404-X (Version None)
Quarter: 2005Q2

REPORT INFORMATION
  Report Type: 
  Country: None (occurrence: None)
  Receive Date: 20050608
  Receipt Date: 20050408
  Transmission Date: 20051028
  Serious: No
  Sender: FDA-Public Use
  Company Number: 2005-BP-06072BP

PATIENT
  Age: 44 Year
  Sex: Male

DRUGS (1)
  1. SPIRIVA [Suspect]
     Dosage: (18 MCG), IH; STARTED 5-6 MONTHS AGO
     Route: 055

REACTIONS (1)
  - DRUG INEFFECTIVE [None]
